FAERS Safety Report 8598645-0 (Version None)
Quarter: 2012Q3

REPORT INFORMATION
  Report Type: 
  Country: None (occurrence: None)
  Receive Date: 20120816
  Receipt Date: 20120806
  Transmission Date: 20120928
  Serious: No
  Sender: FDA-Public Use
  Company Number: US-BAYER-2012-080415

PATIENT
  Age: 89 Year
  Sex: Female
  Weight: 54.422 kg

DRUGS (8)
  1. ASCORBIC ACID [Concomitant]
  2. DIAZIDE [Concomitant]
  3. FISH OIL [Concomitant]
  4. LEVOTHYROXINE SODIUM [Concomitant]
  5. ASPIRIN [Concomitant]
     Indication: ISCHAEMIC HEART DISEASE PROPHYLAXIS
     Dosage: UNK UNK, QD
     Route: 048
  6. VITAMIN D [Concomitant]
  7. CENTRUM [Concomitant]
  8. ALEVE (CAPLET) [Suspect]
     Indication: BACK PAIN
     Dosage: 1 DF, QD
     Route: 048
     Dates: start: 20120701, end: 20120806

REACTIONS (1)
  - BLOOD PRESSURE INCREASED [None]
